FAERS Safety Report 25215993 (Version 2)
Quarter: 2025Q3

REPORT INFORMATION
  Report Type: Spontaneous
  Country: US (occurrence: US)
  Receive Date: 20250418
  Receipt Date: 20250724
  Transmission Date: 20251020
  Serious: Yes (Other)
  Sender: ALEXION PHARMACEUTICALS
  Company Number: US-AstraZeneca-CH-00850911AP

PATIENT
  Sex: Female

DRUGS (1)
  1. BEVESPI AEROSPHERE [Suspect]
     Active Substance: FORMOTEROL FUMARATE\GLYCOPYRROLATE
     Dosage: 9 MICROGRAM, BID
     Route: 065

REACTIONS (7)
  - Pulmonary oedema [Unknown]
  - Product dose omission issue [Unknown]
  - Overdose [Unknown]
  - Incorrect dose administered [Unknown]
  - Respiration abnormal [Unknown]
  - Wrong technique in device usage process [Unknown]
  - Asthma [Unknown]
